FAERS Safety Report 10367495 (Version 2)
Quarter: 2014Q3

REPORT INFORMATION
  Report Type: Report from Study
  Country: US (occurrence: US)
  Receive Date: 20140807
  Receipt Date: 20140807
  Transmission Date: 20150326
  Serious: Yes (Death, Other)
  Sender: FDA-Public Use
  Company Number: US-BAYER-2014-078584

PATIENT
  Age: 57 Year
  Sex: Female

DRUGS (1)
  1. NEXAVAR [Suspect]
     Active Substance: SORAFENIB
     Indication: HEPATIC CANCER
     Dosage: DAILY DOSE 400 MG
     Route: 048
     Dates: start: 20140426, end: 20140513

REACTIONS (5)
  - General physical health deterioration [None]
  - Abdominal distension [None]
  - Death [Fatal]
  - Jaundice [None]
  - Diarrhoea [None]

NARRATIVE: CASE EVENT DATE: 20140603
